FAERS Safety Report 4375706-3 (Version None)
Quarter: 2004Q2

REPORT INFORMATION
  Report Type: 
  Country: None (occurrence: None)
  Receive Date: 20040608
  Receipt Date: 20040109
  Transmission Date: 20050107
  Serious: Yes (Other)
  Sender: FDA-Public Use
  Company Number: 200410144BCC

PATIENT
  Age: 75 Year
  Sex: Female
  Weight: 55.3388 kg

DRUGS (2)
  1. ALEVE [Suspect]
     Indication: ARTHRITIS
     Dosage: 440 MG, BID, ORAL
     Route: 048
     Dates: start: 20030901, end: 20031229
  2. ALEVE [Suspect]
     Indication: PAIN
     Dosage: 440 MG, BID, ORAL
     Route: 048
     Dates: start: 20030901, end: 20031229

REACTIONS (1)
  - BLOOD URINE [None]
